FAERS Safety Report 8489364-X (Version None)
Quarter: 2012Q2

REPORT INFORMATION
  Report Type: 
  Country: None (occurrence: None)
  Receive Date: 20120628
  Receipt Date: 20120628
  Transmission Date: 20120825
  Serious: Yes (Death)
  Sender: FDA-Public Use
  Company Number: None

PATIENT
  Age: 59 Year
  Sex: Female
  Weight: 79.5 kg

DRUGS (1)
  1. KETOROLAC TROMETHAMINE [Suspect]
     Indication: PAIN
     Dates: start: 20120411, end: 20120411

REACTIONS (8)
  - CARDIAC ARREST [None]
  - RESPIRATORY DISTRESS [None]
  - ASTHMA [None]
  - HYPOXIC-ISCHAEMIC ENCEPHALOPATHY [None]
  - ANAPHYLACTIC REACTION [None]
  - VENTRICULAR FIBRILLATION [None]
  - ACUTE MYOCARDIAL INFARCTION [None]
  - BRONCHOSPASM [None]
